FAERS Safety Report 22175360 (Version 1)
Quarter: 2023Q2

REPORT INFORMATION
  Report Type: Spontaneous
  Country: GB (occurrence: GB)
  Receive Date: 20230405
  Receipt Date: 20230405
  Transmission Date: 20230722
  Serious: Yes (Hospitalization)
  Sender: FDA-Public Use
  Company Number: GB-MYLANLABS-2023M1030992

PATIENT
  Sex: Male

DRUGS (1)
  1. CLOZARIL [Suspect]
     Active Substance: CLOZAPINE
     Indication: Schizophrenia
     Dosage: 375 MILLIGRAM, QD (AT NIGHT)
     Route: 048
     Dates: start: 20220516, end: 20230318

REACTIONS (3)
  - Hospitalisation [Unknown]
  - Cough [Unknown]
  - Product dose omission issue [Unknown]
